FAERS Safety Report 12639060 (Version 1)
Quarter: 2016Q3

REPORT INFORMATION
  Report Type: Spontaneous
  Country: FR (occurrence: FR)
  Receive Date: 20160809
  Receipt Date: 20160809
  Transmission Date: 20161109
  Serious: Yes (Hospitalization, Other)
  Sender: FDA-Public Use
  Company Number: FR-IGI LABORATORIES, INC.-1056140

PATIENT
  Age: 26 Year
  Sex: Female

DRUGS (3)
  1. FORTAZ [Suspect]
     Active Substance: CEFTAZIDIME SODIUM
     Indication: OSTEITIS
     Route: 042
     Dates: start: 20160616, end: 20160629
  2. TAZOCILLINE [Suspect]
     Active Substance: PIPERACILLIN SODIUM\TAZOBACTAM SODIUM
     Route: 042
     Dates: start: 20160602, end: 20160616
  3. TAVANIC [Suspect]
     Active Substance: LEVOFLOXACIN
     Route: 048
     Dates: start: 20160607, end: 20160624

REACTIONS (12)
  - Liver injury [Recovered/Resolved]
  - Vomiting [Recovered/Resolved]
  - Papule [Unknown]
  - Rash pruritic [Unknown]
  - Chills [Unknown]
  - Eosinophilia [Unknown]
  - Rash maculo-papular [Unknown]
  - Pyrexia [Recovered/Resolved]
  - Nausea [Recovered/Resolved]
  - Drug intolerance [Unknown]
  - Drug eruption [Recovering/Resolving]
  - Cell death [Unknown]

NARRATIVE: CASE EVENT DATE: 20160619
